FAERS Safety Report 7695256 (Version 8)
Quarter: 2012Q4

REPORT INFORMATION
  Report Type: 
  Country: AT (occurrence: AT)
  Receive Date: 20101207
  Receipt Date: 20121219
  Transmission Date: 20130627
  Serious: Yes (Hospitalization, Other)
  Sender: FDA-Public Use
  Company Number: AT-BIOGENIDEC-2010BI041689

PATIENT
  Age: 37 Year
  Sex: Female

DRUGS (8)
  1. TYSABRI [Suspect]
     Indication: MULTIPLE SCLEROSIS
     Route: 042
     Dates: start: 200706, end: 20101101
  2. FLUCTINE [Concomitant]
     Indication: DEPRESSION
  3. FLUCTINE [Concomitant]
     Indication: DEPRESSION
     Dates: start: 200909
  4. TRITTICO [Concomitant]
     Indication: DEPRESSION
  5. TRITTICO [Concomitant]
     Indication: DEPRESSION
     Dates: start: 201009
  6. WELLBUTRIN [Concomitant]
     Indication: DEPRESSION
     Dates: start: 201009
  7. MIRTABENE [Concomitant]
     Indication: DEPRESSION
     Dates: start: 200909
  8. CORTICOSTEROIDS [Concomitant]

REACTIONS (7)
  - Progressive multifocal leukoencephalopathy [Recovered/Resolved]
  - Hemianopia homonymous [Unknown]
  - Visual impairment [Unknown]
  - Serotonin syndrome [Unknown]
  - Immune reconstitution inflammatory syndrome [Not Recovered/Not Resolved]
  - Multiple sclerosis [Unknown]
  - Device related sepsis [Recovered/Resolved]
